FAERS Safety Report 6039963-X (Version None)
Quarter: 2009Q1

REPORT INFORMATION
  Report Type: 
  Country: None (occurrence: None)
  Receive Date: 20090116
  Receipt Date: 20071102
  Transmission Date: 20090719
  Serious: No
  Sender: FDA-Public Use
  Company Number: US-BRISTOL-MYERS SQUIBB COMPANY-13967831

PATIENT
  Age: 30 Year
  Sex: Female

DRUGS (2)
  1. ABILIFY [Suspect]
     Dosage: ABILIFY WAS DECREASED TO 20MG DAILY
  2. SEROQUEL [Concomitant]
     Dosage: SEROQUEL WAS DECREASED TO 400MG DAILY

REACTIONS (1)
  - DYSKINESIA [None]
